FAERS Safety Report 5051817-4 (Version None)
Quarter: 2006Q3

REPORT INFORMATION
  Report Type: 
  Country: None (occurrence: None)
  Receive Date: 20060712
  Receipt Date: 20060712
  Transmission Date: 20061208
  Serious: Yes (Hospitalization)
  Sender: FDA-Public Use
  Company Number: None

PATIENT
  Age: 65 Year
  Sex: Male

DRUGS (3)
  1. TEQUIN [Suspect]
     Dosage: 400 MG DAILY PO
     Route: 048
  2. ZOLOFT [Concomitant]
  3. ADVAIR INHALER [Concomitant]

REACTIONS (3)
  - CONFUSIONAL STATE [None]
  - CONVULSION [None]
  - DISORIENTATION [None]
